FAERS Safety Report 24324720 (Version 1)
Quarter: 2024Q3

REPORT INFORMATION
  Report Type: Spontaneous
  Country: FR (occurrence: FR)
  Receive Date: 20240916
  Receipt Date: 20240916
  Transmission Date: 20241017
  Serious: Yes (Death, Other)
  Sender: BRISTOL MYERS SQUIBB
  Company Number: None

PATIENT
  Age: 71 Year
  Sex: Male
  Weight: 79 kg

DRUGS (16)
  1. OPDIVO [Suspect]
     Active Substance: NIVOLUMAB
     Indication: Bronchial carcinoma
     Dosage: C1
     Route: 042
     Dates: start: 20240611, end: 20240611
  2. OPDIVO [Suspect]
     Active Substance: NIVOLUMAB
     Dosage: C2
     Route: 042
     Dates: start: 20240716, end: 20240716
  3. OPDIVO [Suspect]
     Active Substance: NIVOLUMAB
     Dosage: C3
     Route: 042
     Dates: start: 20240809, end: 20240809
  4. CARBOPLATIN [Suspect]
     Active Substance: CARBOPLATIN
     Indication: Bronchial carcinoma
     Dosage: C1
     Route: 042
     Dates: start: 20240611, end: 20240611
  5. CARBOPLATIN [Suspect]
     Active Substance: CARBOPLATIN
     Dosage: C2
     Route: 042
     Dates: start: 20240716, end: 20240716
  6. CARBOPLATIN [Suspect]
     Active Substance: CARBOPLATIN
     Dosage: C3
     Route: 042
     Dates: start: 20240809, end: 20240809
  7. PEMETREXED DISODIUM [Suspect]
     Active Substance: PEMETREXED DISODIUM
     Indication: Bronchial carcinoma
     Dosage: C1
     Route: 042
     Dates: start: 20240611, end: 20240611
  8. PEMETREXED DISODIUM [Suspect]
     Active Substance: PEMETREXED DISODIUM
     Dosage: C2
     Route: 042
     Dates: start: 20240716, end: 20240716
  9. PEMETREXED DISODIUM [Suspect]
     Active Substance: PEMETREXED DISODIUM
     Dosage: C3
     Route: 042
     Dates: start: 20240809, end: 20240809
  10. JARDIANCE [Concomitant]
     Active Substance: EMPAGLIFLOZIN
     Indication: Product used for unknown indication
  11. METHYLPREDNISOLONE [Concomitant]
     Active Substance: METHYLPREDNISOLONE
     Indication: Product used for unknown indication
  12. APREPITANT [Concomitant]
     Active Substance: APREPITANT
     Indication: Product used for unknown indication
  13. ALLOPURINOL [Concomitant]
     Active Substance: ALLOPURINOL
     Indication: Product used for unknown indication
  14. COLCHICINE [Concomitant]
     Active Substance: COLCHICINE
     Indication: Product used for unknown indication
  15. ONDANSETRON [Concomitant]
     Active Substance: ONDANSETRON
     Indication: Product used for unknown indication
  16. FLUTICASONE FUROATE\VILANTEROL TRIFENATATE [Concomitant]
     Active Substance: FLUTICASONE FUROATE\VILANTEROL TRIFENATATE
     Indication: Product used for unknown indication

REACTIONS (1)
  - Interstitial lung disease [Fatal]

NARRATIVE: CASE EVENT DATE: 20240809
